FAERS Safety Report 4740673-7 (Version None)
Quarter: 2005Q3

REPORT INFORMATION
  Report Type: 
  Country: None (occurrence: None)
  Receive Date: 20050801
  Receipt Date: 20050629
  Transmission Date: 20060218
  Serious: No
  Sender: FDA-Public Use
  Company Number: 2005PV000215

PATIENT
  Age: 58 Year
  Sex: Male
  Weight: 125.6464 kg

DRUGS (10)
  1. BYETTA [Suspect]
     Indication: DIABETES MELLITUS NON-INSULIN-DEPENDENT
     Dosage: 5 UG; BID; SC
     Route: 058
     Dates: start: 20050627
  2. VERAPAMIL HCL [Concomitant]
  3. METFORMIN HCL [Concomitant]
  4. ECOTRIN [Concomitant]
  5. QUININE SULFATE [Concomitant]
  6. HYDROCHLOROTHIAZIDE [Concomitant]
  7. ALTACE [Concomitant]
  8. AMARYL [Concomitant]
  9. COREG [Concomitant]
  10. FLOMAX [Concomitant]

REACTIONS (1)
  - DRUG INEFFECTIVE [None]
